FAERS Safety Report 24182888 (Version 8)
Quarter: 2025Q1

REPORT INFORMATION
  Report Type: Report from Study
  Country: DE (occurrence: DE)
  Receive Date: 20240807
  Receipt Date: 20250123
  Transmission Date: 20250409
  Serious: Yes (Other)
  Sender: INSMED
  Company Number: DE-INSMED, INC.-2024-01778-DE

PATIENT
  Sex: Female

DRUGS (4)
  1. ARIKAYCE [Suspect]
     Active Substance: AMIKACIN
     Indication: Cystic fibrosis
     Dosage: 590 MILLIGRAM, QD
     Route: 055
     Dates: start: 20240425, end: 20240909
  2. ARIKAYCE [Suspect]
     Active Substance: AMIKACIN
     Dosage: UNK, AROUND THE CLOCK, QD
     Route: 055
     Dates: start: 20241015, end: 20241021
  3. ARIKAYCE [Suspect]
     Active Substance: AMIKACIN
     Dosage: 590 MILLIGRAM, QD
     Route: 055
     Dates: start: 20241022, end: 2024
  4. ARIKAYCE [Suspect]
     Active Substance: AMIKACIN
     Dosage: 590 MILLIGRAM, QD
     Route: 055
     Dates: start: 2024, end: 20241215

REACTIONS (13)
  - Lung disorder [Not Recovered/Not Resolved]
  - Pulmonary haemorrhage [Unknown]
  - Abdominal mass [Unknown]
  - Pleurisy [Unknown]
  - Inflammatory marker increased [Not Recovered/Not Resolved]
  - Dysgeusia [Not Recovered/Not Resolved]
  - Dysphonia [Recovered/Resolved]
  - Asthenia [Recovering/Resolving]
  - Haemoptysis [Recovered/Resolved]
  - Haemoptysis [Recovered/Resolved]
  - Dyspnoea [Recovering/Resolving]
  - Off label use [Unknown]
  - Product dose omission issue [Unknown]

NARRATIVE: CASE EVENT DATE: 20240101
